FAERS Safety Report 24381121 (Version 4)
Quarter: 2025Q2

REPORT INFORMATION
  Report Type: Report from Study
  Country: US (occurrence: US)
  Receive Date: 20240930
  Receipt Date: 20250624
  Transmission Date: 20250717
  Serious: Yes (Hospitalization)
  Sender: ABBVIE
  Company Number: US-ABBVIE-5937984

PATIENT
  Age: 59 Year
  Sex: Female

DRUGS (2)
  1. RINVOQ [Suspect]
     Active Substance: UPADACITINIB
     Indication: Colitis ulcerative
     Route: 048
     Dates: start: 20231007
  2. WELLBUTRIN [Concomitant]
     Active Substance: BUPROPION HYDROCHLORIDE
     Indication: Product used for unknown indication

REACTIONS (9)
  - Epilepsy [Not Recovered/Not Resolved]
  - Foot fracture [Recovering/Resolving]
  - Crying [Not Recovered/Not Resolved]
  - Urine analysis abnormal [Unknown]
  - Fall [Unknown]
  - Spinal disorder [Recovered/Resolved]
  - Brain neoplasm benign [Not Recovered/Not Resolved]
  - Balance disorder [Not Recovered/Not Resolved]
  - Anal incontinence [Recovered/Resolved]

NARRATIVE: CASE EVENT DATE: 20231007
